FAERS Safety Report 14529349 (Version 1)
Quarter: 2018Q1

REPORT INFORMATION
  Report Type: Spontaneous
  Country: JP (occurrence: JP)
  Receive Date: 20180214
  Receipt Date: 20180214
  Transmission Date: 20180509
  Serious: Yes (Hospitalization)
  Sender: FDA-Public Use
  Company Number: JP-ELI_LILLY_AND_COMPANY-JP201802002529

PATIENT
  Age: 71 Year
  Sex: Male

DRUGS (2)
  1. DOCETAXEL. [Suspect]
     Active Substance: DOCETAXEL
     Indication: NON-SMALL CELL LUNG CANCER STAGE IIIB
     Dosage: 92 MG, CYCLICAL
     Route: 042
     Dates: start: 20171129, end: 20180111
  2. CYRAMZA [Suspect]
     Active Substance: RAMUCIRUMAB
     Indication: NON-SMALL CELL LUNG CANCER STAGE IIIB
     Dosage: 819 MG, CYCLICAL
     Route: 042
     Dates: start: 20171129, end: 20180111

REACTIONS (2)
  - Peritonitis [Recovering/Resolving]
  - Febrile neutropenia [Recovered/Resolved]

NARRATIVE: CASE EVENT DATE: 20171207
